FAERS Safety Report 8957566 (Version 3)
Quarter: 2013Q1

REPORT INFORMATION
  Report Type: Spontaneous
  Country: US (occurrence: US)
  Receive Date: 20121211
  Receipt Date: 20130208
  Transmission Date: 20140127
  Serious: Yes (Other)
  Sender: FDA-Public Use
  Company Number: US-SANOFI-AVENTIS-2012SA088373

PATIENT
  Age: 71 Year
  Sex: Male
  Weight: 120.9 kg

DRUGS (8)
  1. LANTUS [Suspect]
     Dosage: DOSE:54 UNIT(S)
     Route: 058
     Dates: start: 20121023, end: 20121207
  2. SOLOSTAR [Suspect]
     Dates: start: 20121023, end: 20121207
  3. LISINOPRIL [Concomitant]
     Indication: HYPERTENSION
  4. TAMSULOSIN [Concomitant]
     Dosage: 0.4 MG 24 CAP
     Route: 048
  5. METFORMIN [Concomitant]
  6. GLIPIZIDE [Concomitant]
  7. CALCIUM [Concomitant]
  8. ASPIRIN [Concomitant]

REACTIONS (4)
  - Peripheral sensorimotor neuropathy [Not Recovered/Not Resolved]
  - Muscular weakness [Not Recovered/Not Resolved]
  - Headache [Recovered/Resolved]
  - Dizziness [Not Recovered/Not Resolved]
